FAERS Safety Report 23669466 (Version 1)
Quarter: 2024Q1

REPORT INFORMATION
  Report Type: Report from Study
  Country: DK (occurrence: DK)
  Receive Date: 20240325
  Receipt Date: 20240325
  Transmission Date: 20240409
  Serious: Yes (Hospitalization, Other)
  Sender: FDA-Public Use
  Company Number: DK-BAXTER-2024BAX015300

PATIENT
  Age: 74 Year
  Sex: Male
  Weight: 75 kg

DRUGS (7)
  1. DOXORUBICIN [Suspect]
     Active Substance: DOXORUBICIN
     Indication: Product used for unknown indication
     Dosage: 50 MG/M2, C1D1
     Route: 042
     Dates: start: 20240306
  2. CYCLOPHOSPHAMIDE [Suspect]
     Active Substance: CYCLOPHOSPHAMIDE
     Indication: Product used for unknown indication
     Dosage: 750 MG/M2, C1D1
     Route: 042
     Dates: start: 20240306
  3. EPCORITAMAB [Suspect]
     Active Substance: EPCORITAMAB
     Indication: Product used for unknown indication
     Dosage: 0.16 MG, C1D1, PRIMING DOSE, WEEKLY ON DAY 1,8,15 AND 22 IN CYCLE 1-3, BIWEEKLY ON DAY 1 AND 15 IN C
     Route: 058
     Dates: start: 20240306, end: 20240306
  4. RITUXIMAB [Suspect]
     Active Substance: RITUXIMAB
     Indication: Product used for unknown indication
     Dosage: 375 MG/M2, C1D1, ONGOING
     Route: 042
     Dates: start: 20240306
  5. VINCRISTINE [Suspect]
     Active Substance: VINCRISTINE
     Indication: Product used for unknown indication
     Dosage: 1.4 MG/M2, C1D1, ONGOING
     Route: 042
     Dates: start: 20240306
  6. CETIRIZINE HYDROCHLORIDE [Concomitant]
     Active Substance: CETIRIZINE HYDROCHLORIDE
     Indication: Premedication
     Dosage: 10 MG
     Route: 048
     Dates: start: 20240306, end: 20240306
  7. ACETAMINOPHEN [Concomitant]
     Active Substance: ACETAMINOPHEN
     Indication: Premedication
     Dosage: 1000 MG
     Route: 048
     Dates: start: 20240306, end: 20240306

REACTIONS (1)
  - Tumour lysis syndrome [Recovered/Resolved]

NARRATIVE: CASE EVENT DATE: 20240307
